FAERS Safety Report 15222542 (Version 1)
Quarter: 2018Q3

REPORT INFORMATION
  Report Type: Spontaneous
  Country: US (occurrence: US)
  Receive Date: 20180705
  Receipt Date: 20180705
  Transmission Date: 20181010
  Serious: Yes (Hospitalization)
  Sender: FDA-Public Use
  Company Number: None

PATIENT
  Age: 59 Year
  Sex: Male

DRUGS (10)
  1. AMLODIPINE [Concomitant]
     Active Substance: AMLODIPINE BESYLATE
  2. SERTRALINE [Concomitant]
     Active Substance: SERTRALINE HYDROCHLORIDE
  3. TACROLIMUS. [Concomitant]
     Active Substance: TACROLIMUS
  4. METOPROLOL TARTRATE. [Concomitant]
     Active Substance: METOPROLOL TARTRATE
  5. ALPRAZOLAM. [Concomitant]
     Active Substance: ALPRAZOLAM
  6. ATORVASTATIN [Concomitant]
     Active Substance: ATORVASTATIN
  7. LISINOPRIL. [Concomitant]
     Active Substance: LISINOPRIL
  8. SOD POLY SUL POW [Concomitant]
  9. PROCRIT [Suspect]
     Active Substance: ERYTHROPOIETIN
     Indication: ANAEMIA
     Route: 058
     Dates: start: 20180607
  10. AZATHIOPRINE. [Concomitant]
     Active Substance: AZATHIOPRINE

REACTIONS (1)
  - Hospitalisation [None]

NARRATIVE: CASE EVENT DATE: 20180703
